FAERS Safety Report 13827602 (Version 5)
Quarter: 2018Q2

REPORT INFORMATION
  Report Type: Report from Study
  Country: IT (occurrence: IT)
  Receive Date: 20170802
  Receipt Date: 20180614
  Transmission Date: 20180711
  Serious: Yes (Hospitalization, Other)
  Sender: FDA-Public Use
  Company Number: IT-MYLANLABS-2017M1048209

PATIENT
  Age: 48 Year
  Sex: Female

DRUGS (9)
  1. LAMOTRIGINE. [Concomitant]
     Active Substance: LAMOTRIGINE
     Indication: PRODUCT USED FOR UNKNOWN INDICATION
     Dosage: UNK
     Route: 048
  2. CLOZAPINE. [Suspect]
     Active Substance: CLOZAPINE
     Dosage: UNK
     Route: 048
  3. LITIUMKARBONAT [Concomitant]
     Active Substance: LITHIUM CARBONATE
     Dosage: 3 DF, QD
     Route: 048
  4. LORAZEPAM. [Suspect]
     Active Substance: LORAZEPAM
     Dosage: UNK
     Route: 048
     Dates: start: 20170627
  5. LORAZEPAM. [Suspect]
     Active Substance: LORAZEPAM
     Indication: PRODUCT USED FOR UNKNOWN INDICATION
     Dosage: UNK
     Route: 048
  6. LITIUMKARBONAT [Concomitant]
     Active Substance: LITHIUM CARBONATE
     Indication: PRODUCT USED FOR UNKNOWN INDICATION
     Dosage: 150 MG, UNK
     Route: 048
  7. LITHIUM ASPARTATE [Concomitant]
     Active Substance: LITHIUM ASPARTATE
     Indication: PRODUCT USED FOR UNKNOWN INDICATION
     Dosage: 450 MG, QD
     Route: 048
  8. CLOZAPINE. [Suspect]
     Active Substance: CLOZAPINE
     Indication: PRODUCT USED FOR UNKNOWN INDICATION
     Dosage: 150 MG, QD
     Route: 048
  9. LITIO [Concomitant]
     Active Substance: LITHIUM CARBONATE
     Indication: PRODUCT USED FOR UNKNOWN INDICATION
     Dosage: UNK
     Route: 048

REACTIONS (5)
  - Suicide attempt [Unknown]
  - Drug abuse [Unknown]
  - Pleural effusion [Unknown]
  - Toxicity to various agents [Unknown]
  - Intentional overdose [Unknown]

NARRATIVE: CASE EVENT DATE: 201706
